FAERS Safety Report 9843953 (Version 1)
Quarter: 2013Q4

REPORT INFORMATION
  Report Type: Spontaneous
  Country: US (occurrence: None)
  Receive Date: 20131223
  Receipt Date: 20131223
  Transmission Date: 20140711
  Serious: Yes (Other)
  Sender: FDA-Public Use
  Company Number: 1000049871

PATIENT
  Age: 52 Year
  Sex: Female

DRUGS (2)
  1. LINZESS (LINACLOTIDE) (145 MICROGRAM, CAPSULES) [Suspect]
     Indication: CONSTIPATION
     Dosage: 145 MCG (145 MCG, 1 IN 1 D), ORAL
     Route: 048
     Dates: start: 20130924, end: 20131007
  2. LISINOPRIL (LISINOPRIL) (LISINOPRIL) [Concomitant]

REACTIONS (3)
  - Weight increased [None]
  - Abdominal distension [None]
  - Abdominal pain [None]
